FAERS Safety Report 6079164-2 (Version None)
Quarter: 2009Q1

REPORT INFORMATION
  Report Type: 
  Country: None (occurrence: None)
  Receive Date: 20090216
  Receipt Date: 20090206
  Transmission Date: 20090719
  Serious: Yes (Hospitalization)
  Sender: FDA-Public Use
  Company Number: B0107322A

PATIENT
  Age: 65 Year
  Sex: Male

DRUGS (4)
  1. VALTREX [Suspect]
     Indication: HERPES ZOSTER
     Dosage: 1000MG PER DAY
     Route: 048
     Dates: start: 20010502, end: 20010506
  2. SULINDAC [Concomitant]
  3. THEOPHYLLINE [Concomitant]
  4. DIALYSIS [Concomitant]

REACTIONS (4)
  - AGITATION [None]
  - INSOMNIA [None]
  - NEUROSIS [None]
  - SPEECH DISORDER [None]
